FAERS Safety Report 9105056 (Version 1)
Quarter: 2013Q1

REPORT INFORMATION
  Report Type: Spontaneous
  Country: CN (occurrence: CN)
  Receive Date: 20130220
  Receipt Date: 20130220
  Transmission Date: 20140127
  Serious: Yes (Death)
  Sender: FDA-Public Use
  Company Number: CN-SANOFI-AVENTIS-2013SA009111

PATIENT
  Sex: 0

DRUGS (2)
  1. TAXOTERE [Suspect]
     Indication: SQUAMOUS CELL CARCINOMA OF LUNG
     Route: 041
     Dates: start: 201301, end: 201301
  2. CISPLATIN [Concomitant]
     Indication: SQUAMOUS CELL CARCINOMA OF LUNG
     Dates: start: 201301, end: 201301

REACTIONS (2)
  - Haemoptysis [Fatal]
  - Asphyxia [Fatal]
